FAERS Safety Report 6814090-X (Version None)
Quarter: 2010Q3

REPORT INFORMATION
  Report Type: 
  Country: None (occurrence: None)
  Receive Date: 20100702
  Receipt Date: 20090914
  Transmission Date: 20110219
  Serious: No
  Sender: FDA-Public Use
  Company Number: A0807246A

PATIENT
  Age: 78 Year
  Sex: Female

DRUGS (10)
  1. ADVAIR DISKUS 100/50 [Suspect]
     Indication: ASTHMA
     Dosage: 1PUFF TWICE PER DAY
     Route: 055
     Dates: start: 20020101
  2. DIAVAN [Concomitant]
  3. CARTIA XT [Concomitant]
  4. CATAPRES [Concomitant]
  5. SIMVASTATIN [Concomitant]
  6. ASPIRIN [Concomitant]
  7. LOVAZA [Concomitant]
  8. CALCIUM + VITAMIN D [Concomitant]
  9. M.V.I. [Concomitant]
  10. PROAIR HFA [Concomitant]

REACTIONS (1)
  - INSOMNIA [None]
